FAERS Safety Report 5161563-4 (Version None)
Quarter: 2006Q4

REPORT INFORMATION
  Report Type: 
  Country: None (occurrence: None)
  Receive Date: 20061130
  Receipt Date: 20060912
  Transmission Date: 20070319
  Serious: No
  Sender: FDA-Public Use
  Company Number: US-GLAXOSMITHKLINE-A0619887A

PATIENT
  Age: 84 Year
  Sex: Female

DRUGS (5)
  1. WELLBUTRIN XL [Suspect]
     Indication: DEPRESSION
     Dosage: 300MG PER DAY
     Route: 048
  2. LIPITOR [Concomitant]
  3. VICODIN [Concomitant]
  4. VESICARE [Concomitant]
  5. LISINOPRIL [Concomitant]

REACTIONS (1)
  - CONSTIPATION [None]
